FAERS Safety Report 4332255-6 (Version None)
Quarter: 2004Q1

REPORT INFORMATION
  Report Type: 
  Country: None (occurrence: None)
  Receive Date: 20040329
  Receipt Date: 20040319
  Transmission Date: 20041129
  Serious: Yes (Hospitalization)
  Sender: FDA-Public Use
  Company Number: A001-002-006014

PATIENT
  Age: 78 Year
  Sex: Male

DRUGS (3)
  1. ARICEPT [Suspect]
     Indication: DEMENTIA ALZHEIMER'S TYPE
     Dosage: 10 MG, 1 IN 1 D, ORAL
     Route: 048
     Dates: start: 20030701
  2. NAMENDA [Suspect]
     Indication: DEMENTIA ALZHEIMER'S TYPE
     Dosage: 5 MG, 1IN 1 D, ORAL
     Route: 048
     Dates: start: 20040301, end: 20040301
  3. LITHIUM CARBONATE [Suspect]
     Dosage: 300 MG, ORAL
     Route: 048
     Dates: end: 20040301

REACTIONS (4)
  - BLOOD CREATININE INCREASED [None]
  - CONFUSIONAL STATE [None]
  - ENCEPHALOPATHY [None]
  - THERAPEUTIC AGENT TOXICITY [None]
